FAERS Safety Report 7478705-8 (Version None)
Quarter: 2011Q2

REPORT INFORMATION
  Report Type: 
  Country: None (occurrence: None)
  Receive Date: 20110513
  Receipt Date: 20110504
  Transmission Date: 20111010
  Serious: Yes (Hospitalization)
  Sender: FDA-Public Use
  Company Number: DE-JNJFOC-20070605188

PATIENT
  Age: 57 Year
  Sex: Male

DRUGS (9)
  1. TIMONIL [Concomitant]
     Route: 048
  2. ZYPREXA [Suspect]
     Route: 048
  3. TIAPRIDEX [Suspect]
     Indication: ILL-DEFINED DISORDER
     Route: 048
  4. VIGANTOLETTEN [Concomitant]
     Route: 048
  5. HALDOL [Suspect]
     Indication: ILL-DEFINED DISORDER
     Route: 048
  6. ZYPREXA [Suspect]
     Indication: ILL-DEFINED DISORDER
     Route: 048
  7. AKINETON [Concomitant]
     Route: 048
  8. ZYPREXA [Suspect]
     Route: 048
  9. MELPERON [Suspect]
     Indication: ILL-DEFINED DISORDER
     Route: 048

REACTIONS (4)
  - DEPRESSIVE SYMPTOM [None]
  - AKATHISIA [None]
  - TARDIVE DYSKINESIA [None]
  - SUICIDAL IDEATION [None]
